FAERS Safety Report 6603514-9 (Version None)
Quarter: 2010Q1

REPORT INFORMATION
  Report Type: 
  Country: None (occurrence: None)
  Receive Date: 20100226
  Receipt Date: 20090831
  Transmission Date: 20100710
  Serious: No
  Sender: FDA-Public Use
  Company Number: A0802143A

PATIENT
  Sex: Male

DRUGS (2)
  1. VALACYCLOVIR [Suspect]
     Indication: MENIERE'S DISEASE
     Route: 048
  2. CONCURRENT MEDICATIONS [Concomitant]

REACTIONS (4)
  - DIARRHOEA [None]
  - DIZZINESS [None]
  - DRUG INEFFECTIVE [None]
  - VOMITING [None]
